FAERS Safety Report 7938323-1 (Version None)
Quarter: 2011Q4

REPORT INFORMATION
  Report Type: 
  Country: None (occurrence: None)
  Receive Date: 20111123
  Receipt Date: 20111118
  Transmission Date: 20120403
  Serious: Yes (Hospitalization)
  Sender: FDA-Public Use
  Company Number: IT-ABBOTT-11P-083-0875865-00

PATIENT
  Age: 44 Year
  Sex: Female

DRUGS (7)
  1. DEPAKENE [Concomitant]
     Indication: PRODUCT USED FOR UNKNOWN INDICATION
  2. NOZINAN [Suspect]
     Indication: INTENTIONAL OVERDOSE
     Dosage: 20 UNIT (25 MG TABLET)
     Route: 048
     Dates: start: 20110913, end: 20110913
  3. DIAZEPAM [Suspect]
     Indication: ANXIETY
  4. DEPAKENE [Suspect]
     Indication: INTENTIONAL OVERDOSE
     Dosage: 20 UNIT (500 MG TABLET) TOTAL
     Route: 048
     Dates: start: 20110913, end: 20110913
  5. ALCOHOL [Concomitant]
     Indication: PRODUCT USED FOR UNKNOWN INDICATION
     Dates: start: 20110913
  6. DEPAKENE [Suspect]
     Indication: SCHIZOAFFECTIVE DISORDER
  7. DIAZEPAM [Suspect]
     Indication: INTENTIONAL OVERDOSE
     Dosage: .5 PERCENT, 40 DROPS TOTAL
     Route: 048
     Dates: start: 20110913, end: 20110913

REACTIONS (4)
  - SOPOR [None]
  - VOMITING [None]
  - SINUS TACHYCARDIA [None]
  - MULTIPLE DRUG OVERDOSE INTENTIONAL [None]
